FAERS Safety Report 19270544 (Version 2)
Quarter: 2021Q4

REPORT INFORMATION
  Report Type: Report from Study
  Country: US (occurrence: US)
  Receive Date: 20210518
  Receipt Date: 20211122
  Transmission Date: 20220303
  Serious: Yes (Hospitalization)
  Sender: FDA-Public Use
  Company Number: US-NOVARTISPH-NVSC2021US094616

PATIENT
  Age: 72 Year
  Sex: Female
  Weight: 54 kg

DRUGS (7)
  1. UNSPECIFIED INGREDIENT [Suspect]
     Active Substance: UNSPECIFIED INGREDIENT
     Indication: Non-small cell lung cancer
     Dosage: NO TREATMENT
     Route: 065
  2. CAPMATINIB [Suspect]
     Active Substance: CAPMATINIB
     Indication: Non-small cell lung cancer metastatic
     Dosage: 400 MG, BID
     Route: 048
     Dates: start: 20210416, end: 20210423
  3. SPARTALIZUMAB [Suspect]
     Active Substance: SPARTALIZUMAB
     Indication: Non-small cell lung cancer
     Dosage: 400 MG, Q4W
     Route: 042
     Dates: start: 20210416, end: 20210416
  4. CABERGOLINE [Concomitant]
     Active Substance: CABERGOLINE
     Indication: Prophylaxis
     Dosage: 0.25 MG, BIW
     Route: 048
     Dates: start: 20150403
  5. PREDNISONE [Concomitant]
     Active Substance: PREDNISONE
     Indication: Secondary adrenocortical insufficiency
     Dosage: 4 MG, QD
     Route: 048
     Dates: start: 20160512
  6. LEVOTHYROXINE [Concomitant]
     Active Substance: LEVOTHYROXINE
     Indication: Hypothyroidism
     Dosage: 75 UG, OTHER
     Route: 048
     Dates: start: 20150121
  7. ATORVASTATIN [Concomitant]
     Active Substance: ATORVASTATIN
     Indication: Hypercholesterolaemia
     Dosage: 20 MG, QD
     Route: 048
     Dates: start: 20150721

REACTIONS (1)
  - Rash maculo-papular [Recovering/Resolving]

NARRATIVE: CASE EVENT DATE: 20210424
